FAERS Safety Report 8435116-6 (Version None)
Quarter: 2012Q2

REPORT INFORMATION
  Report Type: 
  Country: None (occurrence: None)
  Receive Date: 20120614
  Receipt Date: 20120611
  Transmission Date: 20120825
  Serious: Yes (Hospitalization)
  Sender: FDA-Public Use
  Company Number: PHHY2012FR046887

PATIENT
  Sex: Female

DRUGS (15)
  1. MODOPAR [Suspect]
     Indication: PARKINSON'S DISEASE
     Dosage: 125 MG, PRN
     Dates: start: 20090101, end: 20120326
  2. REQUIP [Suspect]
     Dosage: 20 MG, UNK
     Dates: start: 20080501
  3. MODOPAR [Suspect]
     Dosage: 125 MG, DAILY
     Dates: start: 20120330
  4. REQUIP [Suspect]
     Dosage: 24 MG, UNK
     Dates: start: 20120307, end: 20120326
  5. REQUIP [Suspect]
     Dosage: 2 MG, BID
  6. MORPHINE SULFATE [Suspect]
     Indication: PAIN
     Dosage: 1 DF, UNK
     Route: 048
     Dates: start: 20120325
  7. REQUIP [Suspect]
     Dates: start: 20120202
  8. LYRICA [Suspect]
     Indication: PAIN
     Dosage: 50 MG, UNK
     Dates: start: 20120307, end: 20120326
  9. REQUIP [Suspect]
     Indication: PARKINSON'S DISEASE
     Dates: start: 20070601, end: 20070101
  10. STALEVO 100 [Suspect]
     Dosage: 200/100/12.5 MG, 4 TIME DAILY
     Dates: start: 20120413
  11. STALEVO 100 [Suspect]
     Dosage: 200/75/12.5 MG, 4 TIME DAILY
     Route: 048
     Dates: start: 20120413
  12. AZILECT [Concomitant]
     Dosage: 1 MG, DAILY
     Dates: start: 20081001
  13. STALEVO 100 [Suspect]
     Indication: PARKINSON'S DISEASE
     Dosage: 200/50/12.5 MG, 4 TIME DAILY
     Dates: start: 20090101, end: 20120330
  14. REQUIP [Suspect]
     Dosage: 20 MG, UNK
     Dates: start: 20120228
  15. CLONAZEPAM [Concomitant]
     Dates: start: 20110101

REACTIONS (8)
  - LIBIDO INCREASED [None]
  - CONFUSIONAL STATE [None]
  - DELIRIUM [None]
  - AGITATION [None]
  - DISORIENTATION [None]
  - PERSECUTORY DELUSION [None]
  - PARANOIA [None]
  - ANXIETY [None]
